FAERS Safety Report 24200522 (Version 2)
Quarter: 2024Q3

REPORT INFORMATION
  Report Type: Spontaneous
  Country: DE (occurrence: DE)
  Receive Date: 20240812
  Receipt Date: 20240823
  Transmission Date: 20241016
  Serious: Yes (Other)
  Sender: TEVA
  Company Number: DE-TEVA-VS-3230997

PATIENT
  Age: 65 Year
  Sex: Female

DRUGS (1)
  1. FORMOTEROL [Suspect]
     Active Substance: FORMOTEROL
     Indication: Product used for unknown indication
     Dosage: RATIOPHARM-HARD CAPSULE POWDER FOR INHALATION
     Route: 065
     Dates: start: 20240801, end: 202408

REACTIONS (7)
  - Throat tightness [Unknown]
  - Oropharyngeal discomfort [Recovered/Resolved]
  - Dyspnoea [Unknown]
  - Swelling [Unknown]
  - Hypersensitivity [Unknown]
  - Mucosal dryness [Recovered/Resolved]
  - Rhinorrhoea [Unknown]

NARRATIVE: CASE EVENT DATE: 20240801
